FAERS Safety Report 8328437-9 (Version None)
Quarter: 2012Q2

REPORT INFORMATION
  Report Type: 
  Country: None (occurrence: None)
  Receive Date: 20120502
  Receipt Date: 20120425
  Transmission Date: 20120825
  Serious: No
  Sender: FDA-Public Use
  Company Number: ES-SANOFI-AVENTIS-2012SA021974

PATIENT
  Age: 37 Year
  Sex: Female

DRUGS (8)
  1. AZATHIOPRINE [Concomitant]
  2. LEVOTHYROXINE SODIUM [Concomitant]
     Route: 048
     Dates: start: 20080101
  3. AZATHIOPRINE [Concomitant]
     Dates: end: 20110501
  4. ARAVA [Suspect]
     Indication: RHEUMATOID ARTHRITIS
     Route: 048
     Dates: start: 20110209, end: 20110213
  5. SULFASALAZINE [Concomitant]
  6. ARAVA [Suspect]
     Route: 048
     Dates: start: 20110215, end: 20110227
  7. SIMVASTATIN [Concomitant]
     Route: 048
     Dates: start: 20080601
  8. DACLIZUMAB [Concomitant]
     Dates: start: 20110606

REACTIONS (1)
  - MATERNAL EXPOSURE DURING PREGNANCY [None]
